FAERS Safety Report 5804546-0 (Version None)
Quarter: 2008Q3

REPORT INFORMATION
  Report Type: 
  Country: None (occurrence: None)
  Receive Date: 20080707
  Receipt Date: 20080619
  Transmission Date: 20090109
  Serious: Yes (Hospitalization)
  Sender: FDA-Public Use
  Company Number: 2008BI015956

PATIENT
  Age: 50 Year
  Sex: Female
  Weight: 85.2762 kg

DRUGS (3)
  1. TYSABRI [Suspect]
     Indication: MULTIPLE SCLEROSIS
     Dosage: 300 MG;QM;IV
     Route: 042
     Dates: start: 20080220
  2. PROVIGIL [Concomitant]
  3. WELLBUTRIN [Concomitant]

REACTIONS (11)
  - COGNITIVE DISORDER [None]
  - DEPRESSION [None]
  - DYSPNOEA [None]
  - FATIGUE [None]
  - IMPAIRED WORK ABILITY [None]
  - INTRACARDIAC THROMBUS [None]
  - PAIN IN EXTREMITY [None]
  - PULMONARY EMBOLISM [None]
  - SOMNOLENCE [None]
  - THROMBOSIS [None]
  - UNEVALUABLE EVENT [None]
